FAERS Safety Report 8314409-7 (Version None)
Quarter: 2012Q2

REPORT INFORMATION
  Report Type: 
  Country: None (occurrence: None)
  Receive Date: 20120426
  Receipt Date: 20120416
  Transmission Date: 20120825
  Serious: Yes (Hospitalization)
  Sender: FDA-Public Use
  Company Number: US-PERRIGO-12US003418

PATIENT
  Age: 26 Year
  Sex: Female

DRUGS (1)
  1. ACETAMINOPHEN [Suspect]
     Indication: ANKYLOSING SPONDYLITIS
     Dosage: UNKNOWN
     Route: 048

REACTIONS (8)
  - ENCEPHALOPATHY [None]
  - ACUTE HEPATIC FAILURE [None]
  - ACCIDENTAL OVERDOSE [None]
  - COAGULOPATHY [None]
  - HEPATIC NECROSIS [None]
  - CHOLESTASIS [None]
  - NEUROLOGICAL DECOMPENSATION [None]
  - INTRACRANIAL PRESSURE INCREASED [None]
